FAERS Safety Report 4600655-2 (Version None)
Quarter: 2005Q1

REPORT INFORMATION
  Report Type: 
  Country: None (occurrence: None)
  Receive Date: 20050127
  Receipt Date: 20041118
  Transmission Date: 20050727
  Serious: Yes (Other)
  Sender: FDA-Public Use
  Company Number: USA041184139

PATIENT
  Age: 5 Year
  Sex: Male
  Weight: 20 kg

DRUGS (2)
  1. STRATTERA [Suspect]
     Indication: ATTENTION DEFICIT/HYPERACTIVITY DISORDER
     Dosage: 35 MG DAY
     Dates: start: 20031201
  2. CONCERTA [Concomitant]

REACTIONS (4)
  - HEART RATE INCREASED [None]
  - IRRITABILITY [None]
  - PRESCRIBED OVERDOSE [None]
  - VOMITING [None]
